FAERS Safety Report 16250436 (Version 3)
Quarter: 2019Q2

REPORT INFORMATION
  Report Type: Spontaneous
  Country: IN (occurrence: IN)
  Receive Date: 20190429
  Receipt Date: 20190507
  Transmission Date: 20190711
  Serious: Yes (Life-Threatening, Other)
  Sender: FDA-Public Use
  Company Number: IN-PFIZER INC-2019174824

PATIENT
  Age: 26 Year
  Sex: Female

DRUGS (1)
  1. TRANEXAMIC ACID. [Suspect]
     Active Substance: TRANEXAMIC ACID
     Dosage: 200 MG, LEVEL OF SPINAL INJECTION L3/4
     Route: 037

REACTIONS (8)
  - Hypoxia [Recovered/Resolved]
  - Ventricular fibrillation [Recovered/Resolved]
  - Tachycardia [Recovered/Resolved]
  - Incorrect route of product administration [Unknown]
  - Myoclonic epilepsy [Recovered/Resolved]
  - Status epilepticus [Recovered/Resolved]
  - Restlessness [Recovered/Resolved]
  - Hypertension [Recovered/Resolved]
